FAERS Safety Report 14133385 (Version 4)
Quarter: 2018Q2

REPORT INFORMATION
  Report Type: Spontaneous
  Country: US (occurrence: US)
  Receive Date: 20171026
  Receipt Date: 20180629
  Transmission Date: 20180711
  Serious: No
  Sender: FDA-Public Use
  Company Number: US-PFIZER INC-2017460476

PATIENT
  Age: 60 Year
  Sex: Female
  Weight: 59 kg

DRUGS (12)
  1. CARBOPLATIN. [Concomitant]
     Active Substance: CARBOPLATIN
     Indication: CHEMOTHERAPY
     Dosage: UNK
  2. FEMARA [Concomitant]
     Active Substance: LETROZOLE
     Indication: HORMONE THERAPY
     Dosage: UNK
     Dates: start: 20140619
  3. FISH OIL [Concomitant]
     Active Substance: FISH OIL
     Dosage: UNK
     Dates: start: 20100101
  4. DOCETAXEL. [Suspect]
     Active Substance: DOCETAXEL
     Indication: CHEMOTHERAPY
     Dosage: 75 MG/M2, EVERY 3 WEEKS (SIX CYCLES)
     Dates: start: 20131219, end: 20140403
  5. TAXOTERE [Suspect]
     Active Substance: DOCETAXEL
     Indication: CHEMOTHERAPY
     Dosage: 75 MG/M2, EVERY 3 WEEKS
     Dates: start: 20131219, end: 20140403
  6. ZOCOR [Concomitant]
     Active Substance: SIMVASTATIN
     Dosage: UNK
     Dates: start: 20070101
  7. ONDANSETRON [Concomitant]
     Active Substance: ONDANSETRON
     Dosage: UNK
     Dates: start: 20131203, end: 20141231
  8. TAXOTERE [Suspect]
     Active Substance: DOCETAXEL
     Indication: BREAST CANCER FEMALE
  9. HERCEPTIN [Concomitant]
     Active Substance: TRASTUZUMAB
     Indication: CHEMOTHERAPY
     Dosage: UNK
  10. DOCETAXEL. [Suspect]
     Active Substance: DOCETAXEL
     Indication: BREAST CANCER FEMALE
  11. PARAPLATIN [Concomitant]
     Active Substance: CARBOPLATIN
     Indication: CHEMOTHERAPY
     Dosage: UNK
  12. TYLENOL EXTRA STRENGTH [Concomitant]
     Active Substance: ACETAMINOPHEN
     Dosage: UNK
     Dates: start: 20130101

REACTIONS (5)
  - Alopecia [Not Recovered/Not Resolved]
  - Hair colour changes [Unknown]
  - Hair texture abnormal [Unknown]
  - Hair disorder [Unknown]
  - Madarosis [Unknown]

NARRATIVE: CASE EVENT DATE: 20141003
